FAERS Safety Report 7712790-0 (Version None)
Quarter: 2011Q3

REPORT INFORMATION
  Report Type: 
  Country: None (occurrence: None)
  Receive Date: 20110826
  Receipt Date: 20110818
  Transmission Date: 20111222
  Serious: Yes (Life-Threatening, Hospitalization, Disabling)
  Sender: FDA-Public Use
  Company Number: JP-GLAXOSMITHKLINE-B0696200A

PATIENT
  Sex: Male
  Weight: 16.8 kg

DRUGS (54)
  1. ITRACONAZOLE [Concomitant]
     Dosage: 6ML PER DAY
     Route: 048
     Dates: start: 20080519, end: 20080529
  2. ATARAX [Concomitant]
     Dosage: 14MG PER DAY
     Route: 042
     Dates: start: 20080513, end: 20080526
  3. FUNGUARD [Concomitant]
     Dosage: 50MG PER DAY
     Route: 042
     Dates: start: 20080520, end: 20080710
  4. MORPHINE HCL ELIXIR [Concomitant]
     Dosage: 10MG PER DAY
     Dates: start: 20080521, end: 20080602
  5. FUROSEMIDE [Concomitant]
     Dosage: 5MG PER DAY
     Route: 042
     Dates: start: 20080522, end: 20080524
  6. MILRINONE [Concomitant]
     Dosage: 2MG PER DAY
     Route: 042
     Dates: start: 20080529, end: 20080716
  7. SOLU-CORTEF [Concomitant]
     Dosage: 70MG PER DAY
     Dates: start: 20080523, end: 20080528
  8. CALCICOL [Concomitant]
     Dosage: 20ML PER DAY
     Route: 042
     Dates: start: 20080524, end: 20080526
  9. DOPAMINE HYDROCHLORIDE [Concomitant]
     Dosage: 100MG PER DAY
     Route: 042
     Dates: start: 20080525, end: 20080527
  10. CEFTAZIDIME [Concomitant]
     Dosage: .5G PER DAY
     Route: 042
     Dates: start: 20080531, end: 20080603
  11. PREDNISOLONE [Concomitant]
     Dosage: 30MG PER DAY
     Dates: start: 20080602, end: 20080816
  12. LANSOPRAZOLE [Concomitant]
     Dosage: .25IUAX PER DAY
     Route: 048
     Dates: start: 20080807
  13. ALBUMIN (HUMAN) [Concomitant]
     Dosage: 50ML PER DAY
     Route: 042
     Dates: start: 20080524, end: 20080526
  14. PAZUCROSS [Concomitant]
     Dosage: 70ML PER DAY
     Route: 042
     Dates: start: 20080530, end: 20080610
  15. OMEPRAZOLE [Concomitant]
     Dosage: 10MG PER DAY
     Route: 042
     Dates: start: 20080601, end: 20080624
  16. IMMUNE GLOBULIN INTRAVENOUS (HUMAN) [Concomitant]
     Dosage: 5G PER DAY
     Route: 042
     Dates: start: 20080616, end: 20080616
  17. PIRARUBICIN [Suspect]
     Indication: PRODUCT USED FOR UNKNOWN INDICATION
     Route: 065
  18. GRAN [Concomitant]
     Dates: start: 20080528, end: 20080602
  19. MINOCYCLINE HCL [Concomitant]
     Dosage: 60MG PER DAY
     Route: 042
     Dates: start: 20080607, end: 20080611
  20. PRECIPITATED CALCIUM CARBONATE [Concomitant]
     Dosage: 1.5G PER DAY
     Route: 048
     Dates: start: 20080627
  21. CONCLYTE-MG [Concomitant]
     Dosage: 32ML PER DAY
     Dates: start: 20080528, end: 20080601
  22. ETOPOSIDE [Suspect]
     Indication: STEM CELL TRANSPLANT
     Dosage: 130MG PER DAY
     Route: 042
     Dates: start: 20080516, end: 20080519
  23. MAGMITT [Concomitant]
     Dosage: 250MG PER DAY
     Route: 048
     Dates: start: 20080711
  24. ALBUMIN (HUMAN) [Concomitant]
     Dosage: 50ML PER DAY
     Route: 042
     Dates: start: 20080813, end: 20080813
  25. FUROSEMIDE [Concomitant]
     Dosage: 20MG PER DAY
     Route: 042
     Dates: start: 20080525, end: 20080526
  26. URSO 250 [Concomitant]
     Dosage: 45MG PER DAY
     Route: 048
     Dates: start: 20080523, end: 20080616
  27. ACYCLOVIR [Concomitant]
     Dosage: 180MG PER DAY
     Route: 048
     Dates: start: 20080519, end: 20080627
  28. BACTRIM [Concomitant]
     Dosage: .7G PER DAY
     Route: 048
     Dates: start: 20080603, end: 20080627
  29. ASPIRIN [Concomitant]
     Dosage: 420MG PER DAY
     Route: 048
     Dates: start: 20080605, end: 20080804
  30. ALLOID G [Concomitant]
     Dosage: 30ML PER DAY
     Route: 048
     Dates: start: 20080605, end: 20080618
  31. DIFLUCAN [Concomitant]
     Dosage: 50MG PER DAY
     Route: 048
     Dates: start: 20080612, end: 20080614
  32. AMOXICILLIN [Concomitant]
     Dosage: 100MG PER DAY
     Route: 048
     Dates: start: 20080724, end: 20080726
  33. FAMOTIDINE [Concomitant]
     Dosage: 10MG PER DAY
     Dates: start: 20080519, end: 20080601
  34. FAMOTIDINE [Concomitant]
     Dosage: 1.6MG PER DAY
     Dates: start: 20080728, end: 20080801
  35. TARGOCID [Concomitant]
     Dosage: 240MG PER DAY
     Route: 042
     Dates: start: 20080528, end: 20080531
  36. DECADRON [Concomitant]
     Dosage: 7MG PER DAY
     Dates: start: 20080604, end: 20080604
  37. CARBOPLATIN [Suspect]
     Indication: STEM CELL TRANSPLANT
     Dosage: 250MG PER DAY
     Route: 042
     Dates: start: 20080516, end: 20080519
  38. PRIMPERAN TAB [Concomitant]
     Dosage: 1.2MG PER DAY
     Dates: start: 20080607, end: 20080623
  39. MAXIPIME [Concomitant]
     Dosage: .5G PER DAY
     Route: 042
     Dates: start: 20080518, end: 20080609
  40. ACYCRIL [Concomitant]
     Dosage: 140MG PER DAY
     Route: 042
     Dates: start: 20080522, end: 20080603
  41. KIDMIN [Concomitant]
     Dosage: 200ML PER DAY
     Dates: start: 20080529, end: 20080712
  42. OMEPRAZOLE [Concomitant]
     Dosage: 5MG PER DAY
     Route: 042
     Dates: start: 20080801, end: 20080806
  43. EPOGIN [Concomitant]
     Dates: start: 20080625, end: 20080625
  44. SODIUM BICARBONATE [Concomitant]
     Dosage: 1G PER DAY
     Route: 048
     Dates: start: 20080620
  45. HISHIPHAGEN C [Concomitant]
     Dosage: 20ML PER DAY
     Route: 042
     Dates: start: 20080518, end: 20080531
  46. VICCILLIN [Concomitant]
     Dosage: 500MG PER DAY
     Route: 030
     Dates: start: 20080725, end: 20080730
  47. DECADRON [Concomitant]
     Dosage: 33MG PER DAY
     Dates: start: 20080522, end: 20080522
  48. ALKERAN [Suspect]
     Indication: STEM CELL TRANSPLANT
     Dosage: 57MG PER DAY
     Route: 042
     Dates: start: 20080520, end: 20080521
  49. EPOGIN [Concomitant]
     Dates: start: 20080709, end: 20080709
  50. CARVEDILOL [Concomitant]
     Dosage: 1.4MG PER DAY
     Route: 048
     Dates: start: 20080617
  51. ZOFRAN [Concomitant]
     Dosage: 1.6MG PER DAY
     Route: 042
     Dates: start: 20080516, end: 20080526
  52. VITAMEDIN [Concomitant]
     Dosage: 1IUAX PER DAY
     Route: 042
     Dates: start: 20080520, end: 20080529
  53. MEROPENEM [Concomitant]
     Dosage: 400MG PER DAY
     Dates: start: 20080526, end: 20080531
  54. ANTHROBIN P [Concomitant]
     Dosage: 500IU PER DAY
     Route: 042
     Dates: start: 20080602, end: 20080602

REACTIONS (2)
  - RENAL FAILURE [None]
  - CONGESTIVE CARDIOMYOPATHY [None]
